FAERS Safety Report 25915912 (Version 1)
Quarter: 2025Q4

REPORT INFORMATION
  Report Type: Spontaneous
  Country: US (occurrence: US)
  Receive Date: 20251013
  Receipt Date: 20251013
  Transmission Date: 20260117
  Serious: Yes (Other)
  Sender: APELLIS PHARMACEUTICALS
  Company Number: US-APELLIS-2025-APL-0001931

PATIENT

DRUGS (2)
  1. SYFOVRE [Suspect]
     Active Substance: PEGCETACOPLAN
     Indication: Dry age-related macular degeneration
     Dosage: RIGHT EYE
     Route: 065
  2. SYFOVRE [Suspect]
     Active Substance: PEGCETACOPLAN
     Dosage: LEFT EYE
     Route: 065

REACTIONS (2)
  - Dry age-related macular degeneration [Not Recovered/Not Resolved]
  - Disease progression [Not Recovered/Not Resolved]
